FAERS Safety Report 23097928 (Version 1)
Quarter: 2023Q4

REPORT INFORMATION
  Report Type: Report from Study
  Country: CN (occurrence: CN)
  Receive Date: 20231023
  Receipt Date: 20231023
  Transmission Date: 20240110
  Serious: Yes (Hospitalization)
  Sender: FDA-Public Use
  Company Number: CN-JNJFOC-20231035086

PATIENT
  Age: 64 Year
  Sex: Male

DRUGS (22)
  1. ABIRATERONE ACETATE [Suspect]
     Active Substance: ABIRATERONE ACETATE
     Indication: Hormone-dependent prostate cancer
     Route: 048
     Dates: start: 20230330, end: 20230426
  2. ABIRATERONE ACETATE [Suspect]
     Active Substance: ABIRATERONE ACETATE
     Route: 048
     Dates: start: 20230427, end: 20230525
  3. CAPIVASERTIB [Suspect]
     Active Substance: CAPIVASERTIB
     Indication: Hormone-dependent prostate cancer
     Dosage: CAPIVASERTIB/PLACEBO
     Route: 048
     Dates: start: 20230330, end: 20230402
  4. CAPIVASERTIB [Suspect]
     Active Substance: CAPIVASERTIB
     Route: 048
     Dates: start: 20230406, end: 20230409
  5. CAPIVASERTIB [Suspect]
     Active Substance: CAPIVASERTIB
     Route: 048
     Dates: start: 20230413, end: 20230416
  6. CAPIVASERTIB [Suspect]
     Active Substance: CAPIVASERTIB
     Route: 048
     Dates: start: 20230420, end: 20230423
  7. CAPIVASERTIB [Suspect]
     Active Substance: CAPIVASERTIB
     Route: 048
     Dates: start: 20230427, end: 20230430
  8. CAPIVASERTIB [Suspect]
     Active Substance: CAPIVASERTIB
     Route: 048
     Dates: start: 20230504, end: 20230507
  9. CAPIVASERTIB [Suspect]
     Active Substance: CAPIVASERTIB
     Route: 048
     Dates: start: 20230511, end: 20230514
  10. CAPIVASERTIB [Suspect]
     Active Substance: CAPIVASERTIB
     Route: 048
     Dates: start: 20230518, end: 20230521
  11. CAPIVASERTIB [Suspect]
     Active Substance: CAPIVASERTIB
     Route: 048
     Dates: start: 20230525, end: 20230528
  12. CAPIVASERTIB [Suspect]
     Active Substance: CAPIVASERTIB
     Route: 048
     Dates: start: 20230602, end: 20230605
  13. TRIPTORELIN ACETATE [Concomitant]
     Active Substance: TRIPTORELIN ACETATE
     Indication: Prostate cancer
     Route: 058
     Dates: start: 20230208
  14. 3-ACETYLACONITINE [Concomitant]
     Indication: Herpes zoster
     Route: 048
     Dates: start: 20230412, end: 20230427
  15. INTERFERON ALFA-2B [Concomitant]
     Active Substance: INTERFERON ALFA-2B
     Indication: Herpes zoster
     Dosage: DOSE: 2 IU/KG
     Route: 003
     Dates: start: 20230412, end: 20230427
  16. HUMAN VARICELLA-ZOSTER IMMUNE GLOBULIN [Concomitant]
     Active Substance: HUMAN VARICELLA-ZOSTER IMMUNE GLOBULIN
     Indication: Herpes zoster
     Dates: start: 20230412, end: 20230427
  17. CEPHRADINE [Concomitant]
     Active Substance: CEPHRADINE
     Indication: Herpes zoster
     Dosage: DOSE TEXT: 2 IU/KG
     Dates: start: 20230412, end: 20230427
  18. ALBENDAZOLE [Concomitant]
     Active Substance: ALBENDAZOLE
     Indication: Nodal marginal zone B-cell lymphoma
     Dates: start: 20230412, end: 20230427
  19. PREGABALIN [Concomitant]
     Active Substance: PREGABALIN
     Indication: Herpes zoster
     Route: 048
     Dates: start: 20230413, end: 20230427
  20. RETINOL [Concomitant]
     Active Substance: RETINOL
     Indication: Herpes zoster
     Dates: start: 20230412, end: 20230427
  21. ERGOCALCIFEROL [Concomitant]
     Active Substance: ERGOCALCIFEROL
     Indication: Herpes zoster
     Dates: start: 20230413, end: 20230427
  22. VALACYCLOVIR HYDROCHLORIDE [Concomitant]
     Active Substance: VALACYCLOVIR HYDROCHLORIDE
     Indication: Herpes zoster
     Route: 048
     Dates: start: 20230412, end: 20230427

REACTIONS (1)
  - Chronic hepatitis B [Recovered/Resolved]

NARRATIVE: CASE EVENT DATE: 20230419
